FAERS Safety Report 7450242-6 (Version None)
Quarter: 2011Q2

REPORT INFORMATION
  Report Type: 
  Country: None (occurrence: None)
  Receive Date: 20110428
  Receipt Date: 20110428
  Transmission Date: 20111010
  Serious: Yes (Hospitalization)
  Sender: FDA-Public Use
  Company Number: None

PATIENT
  Sex: Female
  Weight: 43.7268 kg

DRUGS (2)
  1. PACLITAXEL [Suspect]
     Indication: BREAST CANCER METASTATIC
     Dosage: 142 MG WEEKLY IV
     Route: 042
     Dates: start: 20010316, end: 20110413
  2. AVASTIN [Suspect]
     Dosage: 440 MG WEEKLY IV
     Route: 042
     Dates: start: 20110316, end: 20110413

REACTIONS (5)
  - MALAISE [None]
  - FATIGUE [None]
  - DYSTHYMIC DISORDER [None]
  - DEPRESSION [None]
  - FAILURE TO THRIVE [None]
